FAERS Safety Report 7603110-0 (Version None)
Quarter: 2011Q3

REPORT INFORMATION
  Report Type: 
  Country: None (occurrence: None)
  Receive Date: 20110712
  Receipt Date: 20110707
  Transmission Date: 20111222
  Serious: Yes (Other)
  Sender: FDA-Public Use
  Company Number: US-PFIZER INC-2011154485

PATIENT
  Sex: Male

DRUGS (4)
  1. PHENYTOIN SODIUM [Suspect]
     Indication: PARTIAL SEIZURES
     Dosage: UNK
  2. PHENYTOIN SODIUM [Suspect]
     Indication: TEMPORAL LOBE EPILEPSY
  3. TEGRETOL [Suspect]
     Indication: PARTIAL SEIZURES
     Dosage: UNK
  4. TEGRETOL [Suspect]
     Indication: TEMPORAL LOBE EPILEPSY

REACTIONS (3)
  - DRUG INEFFECTIVE [None]
  - PRODUCT SUBSTITUTION ISSUE [None]
  - CONVULSION [None]
